FAERS Safety Report 8157449-3 (Version None)
Quarter: 2012Q1

REPORT INFORMATION
  Report Type: 
  Country: None (occurrence: None)
  Receive Date: 20120222
  Receipt Date: 20120217
  Transmission Date: 20120608
  Serious: Yes (Hospitalization)
  Sender: FDA-Public Use
  Company Number: US-JNJFOC-20100108436

PATIENT
  Age: 57 Year
  Sex: Female
  Weight: 68.04 kg

DRUGS (3)
  1. EXTRA STRENGTH TYLENOL [Suspect]
     Indication: TOOTHACHE
     Route: 048
     Dates: start: 20090901, end: 20100101
  2. ROLAIDS TAB [Suspect]
     Indication: DYSPEPSIA
     Route: 048
     Dates: end: 20100101
  3. EXTRA STRENGTH TYLENOL [Suspect]
     Indication: HEADACHE
     Route: 048
     Dates: start: 20090901, end: 20100101

REACTIONS (18)
  - DRUG INEFFECTIVE [None]
  - GASTROINTESTINAL INFECTION [None]
  - GASTROINTESTINAL INFLAMMATION [None]
  - OESOPHAGEAL DISORDER [None]
  - DYSPEPSIA [None]
  - ABDOMINAL DISTENSION [None]
  - OESOPHAGEAL INFECTION [None]
  - OESOPHAGEAL OEDEMA [None]
  - GASTROINTESTINAL DISORDER [None]
  - LOSS OF CONSCIOUSNESS [None]
  - WEIGHT DECREASED [None]
  - DIARRHOEA [None]
  - CHEST PAIN [None]
  - GASTROINTESTINAL OEDEMA [None]
  - PRODUCT ODOUR ABNORMAL [None]
  - PRODUCT TASTE ABNORMAL [None]
  - ABDOMINAL PAIN UPPER [None]
  - VOMITING [None]
